FAERS Safety Report 17324199 (Version 2)
Quarter: 2021Q2

REPORT INFORMATION
  Report Type: Other
  Country: GB (occurrence: GB)
  Receive Date: 20200127
  Receipt Date: 20210520
  Transmission Date: 20210716
  Serious: Yes (Other)
  Sender: FDA-Public Use
  Company Number: GB-ROCHE-2526313

PATIENT
  Sex: Female

DRUGS (1)
  1. ROACTEMRA [Suspect]
     Active Substance: TOCILIZUMAB
     Indication: GIANT CELL ARTERITIS
     Dosage: PRE?FILLED PEN
     Route: 058
     Dates: start: 201912

REACTIONS (8)
  - Peripheral swelling [Unknown]
  - Urinary tract infection [Unknown]
  - Gastric disorder [Unknown]
  - Musculoskeletal stiffness [Unknown]
  - White blood cell count abnormal [Unknown]
  - Wrong technique in product usage process [Unknown]
  - Dyspnoea [Unknown]
  - Feeling abnormal [Unknown]
